FAERS Safety Report 6671402-8 (Version None)
Quarter: 2010Q2

REPORT INFORMATION
  Report Type: 
  Country: None (occurrence: None)
  Receive Date: 20100406
  Receipt Date: 20100406
  Transmission Date: 20101027
  Serious: Yes (Other)
  Sender: FDA-Public Use
  Company Number: None

PATIENT
  Age: 24 Year
  Sex: Male
  Weight: 63.5036 kg

DRUGS (1)
  1. MOXIFLOXACIN HCL [Suspect]
     Indication: SINUSITIS BACTERIAL
     Dosage: 400 MG 1X PER DAY PO
     Route: 048
     Dates: start: 20100202, end: 20100227

REACTIONS (11)
  - ANXIETY [None]
  - ARTHRITIS [None]
  - DECREASED APPETITE [None]
  - DEPRESSION [None]
  - DISEASE RECURRENCE [None]
  - FATIGUE [None]
  - GASTROOESOPHAGEAL REFLUX DISEASE [None]
  - HYPOGLYCAEMIA [None]
  - INSOMNIA [None]
  - JOINT INJURY [None]
  - RECTAL HAEMORRHAGE [None]
